FAERS Safety Report 24440680 (Version 2)
Quarter: 2024Q4

REPORT INFORMATION
  Report Type: Report from Study
  Country: DE (occurrence: DE)
  Receive Date: 20241016
  Receipt Date: 20241017
  Transmission Date: 20250114
  Serious: No
  Sender: ROCHE
  Company Number: DE-ROCHE-2871193

PATIENT
  Age: 20 Year
  Sex: Male
  Weight: 75.0 kg

DRUGS (3)
  1. EMICIZUMAB [Suspect]
     Active Substance: EMICIZUMAB
     Indication: Haemophilia A with anti factor VIII
     Route: 058
     Dates: start: 20200710, end: 20200731
  2. EMICIZUMAB [Suspect]
     Active Substance: EMICIZUMAB
     Route: 058
     Dates: start: 20200807
  3. ARCOXIA [Concomitant]
     Active Substance: ETORICOXIB
     Indication: Arthralgia
     Route: 048
     Dates: start: 20200424

REACTIONS (1)
  - COVID-19 [Recovered/Resolved]

NARRATIVE: CASE EVENT DATE: 20210329
